FAERS Safety Report 17343563 (Version 1)
Quarter: 2020Q1

REPORT INFORMATION
  Report Type: Spontaneous
  Country: US (occurrence: US)
  Receive Date: 20200129
  Receipt Date: 20200129
  Transmission Date: 20200409
  Serious: No
  Sender: FDA-Public Use
  Company Number: US-ALLERGAN-1938300US

PATIENT
  Age: 37 Year
  Sex: Female

DRUGS (3)
  1. IMITREX [Concomitant]
     Active Substance: SUMATRIPTAN SUCCINATE
     Indication: MIGRAINE
  2. BOTOX [Suspect]
     Active Substance: ONABOTULINUMTOXINA
     Dosage: UNK, SINGLE
     Dates: start: 201906, end: 201906
  3. BOTOX [Suspect]
     Active Substance: ONABOTULINUMTOXINA
     Indication: MIGRAINE
     Dosage: UNK, SINGLE
     Dates: start: 201908, end: 201908

REACTIONS (5)
  - Vomiting [Unknown]
  - Neuralgia [Unknown]
  - Nausea [Unknown]
  - Muscular weakness [Unknown]
  - Headache [Unknown]

NARRATIVE: CASE EVENT DATE: 201906
